FAERS Safety Report 23926678 (Version 1)
Quarter: 2024Q2

REPORT INFORMATION
  Report Type: Spontaneous
  Country: CA (occurrence: CA)
  Receive Date: 20240531
  Receipt Date: 20240531
  Transmission Date: 20240716
  Serious: Yes (Other)
  Sender: FDA-Public Use
  Company Number: CA-MYLANLABS-2019420025

PATIENT
  Age: 27 Year
  Sex: Female

DRUGS (21)
  1. SILDENAFIL [Suspect]
     Active Substance: SILDENAFIL
     Indication: Foetal growth restriction
     Dosage: 20 MG, 2X/DAY REGIMEN DOSE UNIT: MILLIGRAM
     Route: 065
  2. SILDENAFIL [Suspect]
     Active Substance: SILDENAFIL
     Dosage: 20 MG, 3X/DAY REGIMEN DOSE UNIT: MILLIGRAM
     Route: 065
  3. SILDENAFIL [Suspect]
     Active Substance: SILDENAFIL
     Dosage: 20 MILLIGRAM, QID (4 EVERY 1 DAYS)
     Route: 048
  4. METFORMIN [Suspect]
     Active Substance: METFORMIN HYDROCHLORIDE
     Indication: Type 2 diabetes mellitus
     Dosage: UNK
     Route: 065
  5. ASPIRIN [Suspect]
     Active Substance: ASPIRIN
     Indication: Prophylaxis
     Dosage: UNK
     Route: 065
  6. ASPIRIN [Suspect]
     Active Substance: ASPIRIN
     Dosage: UNK
     Route: 022
  7. NIFEDIPINE [Suspect]
     Active Substance: NIFEDIPINE
     Indication: Hypertension
     Dosage: 60 MILLIGRAM, BID
     Route: 065
  8. NIFEDIPINE [Suspect]
     Active Substance: NIFEDIPINE
     Dosage: 20 MILLIGRAM, QD
     Route: 065
  9. NIFEDIPINE [Suspect]
     Active Substance: NIFEDIPINE
     Dosage: 20 MILLIGRAM, BID
     Route: 065
  10. NIFEDIPINE [Suspect]
     Active Substance: NIFEDIPINE
     Dosage: 60 MILLIGRAM, BID (2 EVERY 1 DAYS)
     Route: 023
  11. NIFEDIPINE [Suspect]
     Active Substance: NIFEDIPINE
     Dosage: 60 MILLIGRAM
     Route: 048
  12. NIFEDIPINE [Suspect]
     Active Substance: NIFEDIPINE
     Dosage: 20 MILLIGRAM
     Route: 065
  13. NIFEDIPINE [Suspect]
     Active Substance: NIFEDIPINE
     Dosage: 20 MILLIGRAM, TID (3 EVERY 1 DAYS)
     Route: 065
  14. DICLECTIN [Suspect]
     Active Substance: DOXYLAMINE SUCCINATE\PYRIDOXINE HYDROCHLORIDE
     Indication: Prophylaxis
     Dosage: UNK
     Route: 065
  15. DICLECTIN [Suspect]
     Active Substance: DOXYLAMINE SUCCINATE\PYRIDOXINE HYDROCHLORIDE
     Dosage: UNK
     Route: 048
  16. METHYLDOPA [Suspect]
     Active Substance: METHYLDOPA
     Indication: Hypertension
     Dosage: UNK
     Route: 065
  17. METHYLDOPA [Suspect]
     Active Substance: METHYLDOPA
     Dosage: UNK
     Route: 048
  18. CHLORHEXIDINE [Suspect]
     Active Substance: CHLORHEXIDINE\CHLORHEXIDINE GLUCONATE
     Indication: Gingival hypertrophy
     Route: 065
  19. INSULIN NOS [Suspect]
     Active Substance: INSULIN NOS
     Indication: Type 2 diabetes mellitus
     Dosage: UNK
     Route: 065
  20. INSULIN NOS [Suspect]
     Active Substance: INSULIN NOS
     Dosage: UNK
     Route: 048
  21. VITAMINS NOS [Suspect]
     Active Substance: VITAMINS
     Indication: Prophylaxis
     Dosage: UNK
     Route: 065

REACTIONS (2)
  - Premature delivery [Not Recovered/Not Resolved]
  - Exposure during pregnancy [Unknown]
